FAERS Safety Report 7980009-1 (Version None)
Quarter: 2011Q4

REPORT INFORMATION
  Report Type: 
  Country: None (occurrence: None)
  Receive Date: 20111214
  Receipt Date: 20111209
  Transmission Date: 20120403
  Serious: Yes (Other)
  Sender: FDA-Public Use
  Company Number: PHHY2011FR108367

PATIENT
  Age: 65 Year
  Sex: Female

DRUGS (5)
  1. METEOXANE [Concomitant]
  2. OXETORONE [Concomitant]
  3. PROZAC [Concomitant]
  4. ACLASTA [Suspect]
     Indication: OSTEOPOROSIS
     Route: 042
     Dates: start: 20081021
  5. CLONAZEPAM [Concomitant]

REACTIONS (4)
  - PAIN IN EXTREMITY [None]
  - CYST [None]
  - CONSTIPATION [None]
  - DIVERTICULITIS [None]
